FAERS Safety Report 18814631 (Version 1)
Quarter: 2021Q1

REPORT INFORMATION
  Report Type: Spontaneous
  Country: DE (occurrence: DE)
  Receive Date: 20210201
  Receipt Date: 20210201
  Transmission Date: 20210419
  Serious: Yes (Other)
  Sender: FDA-Public Use
  Company Number: DE-TEVA-2021-DE-1873708

PATIENT
  Age: 40 Year
  Sex: Female

DRUGS (5)
  1. COLESTYRAMIN [Concomitant]
     Active Substance: CHOLESTYRAMINE
     Route: 048
  2. CABERGOLIN?RATIOPHARM 0,5 MG TABLETTEN [Suspect]
     Active Substance: CABERGOLINE
     Indication: BLOOD PROLACTIN INCREASED
     Dosage: 0.25 MG TWICE A WEEK, BEGINNING OF USE UNKNOWN:UNIT DOSE:0.5MILLIGRAM
     Route: 048
  3. LOPERAMID [Concomitant]
     Active Substance: LOPERAMIDE
     Route: 048
  4. MIRTAZAPIN 45MG [Concomitant]
     Route: 048
  5. KREON 25000 [Concomitant]
     Active Substance: PANCRELIPASE
     Route: 048

REACTIONS (1)
  - Arrhythmia [Unknown]

NARRATIVE: CASE EVENT DATE: 2020
